FAERS Safety Report 9912448 (Version 1)
Quarter: 2014Q1

REPORT INFORMATION
  Report Type: Spontaneous
  Country: IT (occurrence: IT)
  Receive Date: 20140220
  Receipt Date: 20140220
  Transmission Date: 20141002
  Serious: Yes (Hospitalization)
  Sender: FDA-Public Use
  Company Number: IT-BRISTOL-MYERS SQUIBB COMPANY-20193371

PATIENT
  Age: 77 Year
  Sex: Female

DRUGS (2)
  1. COUMADIN TABS 5 MG [Suspect]
     Indication: ATRIAL FIBRILLATION
     Dosage: 1DF- 1 UNIT?01JAN2013 TO 23NOV2013?UNK TO 01DEC2013
     Route: 048
     Dates: start: 20130101
  2. CLEXANE [Concomitant]
     Dosage: AXA INJECTION SOLUTION
     Route: 058

REACTIONS (3)
  - Embolic stroke [Unknown]
  - Epistaxis [Unknown]
  - Overdose [Unknown]
